FAERS Safety Report 14650633 (Version 2)
Quarter: 2018Q1

REPORT INFORMATION
  Report Type: Spontaneous
  Country: SE (occurrence: SE)
  Receive Date: 20180316
  Receipt Date: 20180321
  Transmission Date: 20180509
  Serious: Yes (Other)
  Sender: FDA-Public Use
  Company Number: SE-ABBVIE-18P-150-2289843-00

PATIENT
  Age: 33 Year
  Sex: Male
  Weight: 65 kg

DRUGS (3)
  1. RITONAVIR. [Suspect]
     Active Substance: RITONAVIR
     Indication: PRODUCT USED FOR UNKNOWN INDICATION
     Route: 065
  2. IVERMECTIN. [Interacting]
     Active Substance: IVERMECTIN
     Indication: ACARODERMATITIS
     Route: 065
  3. DARUNAVIR [Suspect]
     Active Substance: DARUNAVIR
     Indication: PRODUCT USED FOR UNKNOWN INDICATION
     Route: 065

REACTIONS (2)
  - Seizure [Recovered/Resolved]
  - Drug interaction [Recovered/Resolved]
